FAERS Safety Report 14247552 (Version 4)
Quarter: 2018Q1

REPORT INFORMATION
  Report Type: Spontaneous
  Country: US (occurrence: US)
  Receive Date: 20171204
  Receipt Date: 20180220
  Transmission Date: 20180508
  Serious: Yes (Hospitalization)
  Sender: FDA-Public Use
  Company Number: US-ELI_LILLY_AND_COMPANY-US201711010079

PATIENT
  Age: 81 Year
  Sex: Male

DRUGS (4)
  1. HUMALOG [Suspect]
     Active Substance: INSULIN LISPRO
     Dosage: 8 U, EACH EVENING
     Route: 058
  2. HUMALOG [Suspect]
     Active Substance: INSULIN LISPRO
     Dosage: 7 U, EACH MORNING
     Route: 058
  3. HUMALOG [Suspect]
     Active Substance: INSULIN LISPRO
     Indication: TYPE 1 DIABETES MELLITUS
     Dosage: UNK, UNKNOWN
     Route: 065
  4. HUMALOG [Suspect]
     Active Substance: INSULIN LISPRO
     Dosage: 10 U, (AT LUNCH)
     Route: 058

REACTIONS (10)
  - Eye disorder [Not Recovered/Not Resolved]
  - Prescription drug used without a prescription [Unknown]
  - Road traffic accident [Unknown]
  - Expired product administered [Unknown]
  - Subdural haematoma [Unknown]
  - Memory impairment [Not Recovered/Not Resolved]
  - Drug hypersensitivity [Unknown]
  - Brain injury [Not Recovered/Not Resolved]
  - Cerebrovascular accident [Unknown]
  - Cataract [Unknown]

NARRATIVE: CASE EVENT DATE: 201605
